FAERS Safety Report 4409794-2 (Version None)
Quarter: 2004Q3

REPORT INFORMATION
  Report Type: 
  Country: None (occurrence: None)
  Receive Date: 20040726
  Receipt Date: 20040721
  Transmission Date: 20050211
  Serious: Yes (Hospitalization)
  Sender: FDA-Public Use
  Company Number: FRWYE921821JUL04

PATIENT
  Age: 40 Year
  Sex: Male

DRUGS (2)
  1. EFFEXOR [Suspect]
  2. LAMICTAL [Suspect]
     Dosage: ORAL
     Route: 048

REACTIONS (2)
  - FALL [None]
  - INJURY [None]
